FAERS Safety Report 9014345 (Version 1)
Quarter: 2013Q1

REPORT INFORMATION
  Report Type: Spontaneous
  Country: US (occurrence: US)
  Receive Date: 20130115
  Receipt Date: 20130115
  Transmission Date: 20140127
  Serious: No
  Sender: FDA-Public Use
  Company Number: US-PFIZER INC-2013016359

PATIENT
  Age: 60 Year
  Sex: Female
  Weight: 77.1 kg

DRUGS (9)
  1. NEURONTIN [Suspect]
     Indication: PAIN IN EXTREMITY
     Dosage: 100 MG, 3X/DAY
     Dates: start: 2012
  2. NEURONTIN [Suspect]
     Dosage: 200 MG, 3X/DAY
  3. PREMARIN [Suspect]
     Indication: HOT FLUSH
     Dosage: UNK
  4. ATACAND [Concomitant]
     Indication: HYPERTENSION
     Dosage: UNK
  5. TOPIRAMATE [Concomitant]
     Indication: MIGRAINE
     Dosage: UNK
  6. XANAX [Concomitant]
     Indication: SLEEP DISORDER
     Dosage: UNK
  7. CYMBALTA [Concomitant]
     Indication: DEPRESSION
     Dosage: UNK
  8. WELLBUTRIN [Concomitant]
     Indication: DEPRESSION
     Dosage: UNK
  9. DEXLANSOPRAZOLE [Concomitant]
     Indication: GASTROOESOPHAGEAL REFLUX DISEASE
     Dosage: UNK

REACTIONS (2)
  - Hot flush [Recovered/Resolved]
  - Therapeutic response unexpected [Unknown]
